FAERS Safety Report 4446106-2 (Version None)
Quarter: 2004Q3

REPORT INFORMATION
  Report Type: 
  Country: None (occurrence: None)
  Receive Date: 20040903
  Receipt Date: 20040823
  Transmission Date: 20050211
  Serious: Yes (Other)
  Sender: FDA-Public Use
  Company Number: USA-2004-0016436

PATIENT
  Sex: Male

DRUGS (1)
  1. OXYCONTIN [Suspect]

REACTIONS (7)
  - AMMONIA INCREASED [None]
  - CHEYNE-STOKES RESPIRATION [None]
  - CONDITION AGGRAVATED [None]
  - DYSPHAGIA [None]
  - MEDICATION ERROR [None]
  - MULTI-ORGAN FAILURE [None]
  - RESPIRATORY DISTRESS [None]
